FAERS Safety Report 12490099 (Version 2)
Quarter: 2016Q2

REPORT INFORMATION
  Report Type: Spontaneous
  Country: FR (occurrence: FR)
  Receive Date: 20160622
  Receipt Date: 20160627
  Transmission Date: 20160815
  Serious: Yes (Other)
  Sender: FDA-Public Use
  Company Number: FR-ABBVIE-16P-056-1658248-00

PATIENT
  Age: 58 Year
  Sex: Male

DRUGS (1)
  1. DEPAKINE CHRONO [Suspect]
     Active Substance: VALPROATE SODIUM
     Indication: EPILEPSY
     Dosage: TIME TO ONSET: FEW YEAR(S)
     Route: 048
     Dates: start: 2001

REACTIONS (8)
  - Anxiety [Not Recovered/Not Resolved]
  - Tremor [Not Recovered/Not Resolved]
  - Anger [Not Recovered/Not Resolved]
  - Abnormal behaviour [Not Recovered/Not Resolved]
  - Epistaxis [Not Recovered/Not Resolved]
  - Affective disorder [Not Recovered/Not Resolved]
  - Aggression [Not Recovered/Not Resolved]
  - Impaired quality of life [Not Recovered/Not Resolved]

NARRATIVE: CASE EVENT DATE: 2015
